FAERS Safety Report 6642123-2 (Version None)
Quarter: 2010Q1

REPORT INFORMATION
  Report Type: 
  Country: None (occurrence: None)
  Receive Date: 20100319
  Receipt Date: 20100309
  Transmission Date: 20100710
  Serious: Yes (Hospitalization, Congenital Anomaly)
  Sender: FDA-Public Use
  Company Number: FR-BRISTOL-MYERS SQUIBB COMPANY-15010663

PATIENT
  Age: 92 Day
  Sex: Male
  Weight: 4 kg

DRUGS (2)
  1. ABILIFY [Suspect]
     Route: 064
  2. AMITRIPTYLINE HCL [Suspect]
     Route: 064

REACTIONS (1)
  - CRYPTORCHISM [None]
